FAERS Safety Report 9972845 (Version 2)
Quarter: 2014Q3

REPORT INFORMATION
  Report Type: Spontaneous
  Country: US (occurrence: None)
  Receive Date: 20140128
  Receipt Date: 20140905
  Transmission Date: 20150326
  Serious: Yes (Hospitalization)
  Sender: FDA-Public Use
  Company Number: A-US2013-84955

PATIENT
  Age: 53 Year
  Sex: Female

DRUGS (3)
  1. VELETRI (EPOPROSTENOL SODIUM) [Suspect]
     Active Substance: EPOPROSTENOL SODIUM
     Indication: PULMONARY ARTERIAL HYPERTENSION
     Dosage: 12NG/KG PER MIN, INTRAVENOUS
     Route: 042
  2. TYVASO (TREPROSTINIL SODIUM) [Concomitant]
  3. TRACLEER [Suspect]
     Active Substance: BOSENTAN\BOSENTAN MONOHYDRATE
     Indication: PULMONARY ARTERIAL HYPERTENSION
     Route: 048

REACTIONS (3)
  - Dyspnoea [None]
  - Palpitations [None]
  - Device issue [None]

NARRATIVE: CASE EVENT DATE: 201306
